FAERS Safety Report 5749188-0 (Version None)
Quarter: 2008Q2

REPORT INFORMATION
  Report Type: 
  Country: None (occurrence: None)
  Receive Date: 20080527
  Receipt Date: 20080515
  Transmission Date: 20081010
  Serious: Yes (Other)
  Sender: FDA-Public Use
  Company Number: JP-ROCHE-560107

PATIENT
  Sex: Female
  Weight: 12 kg

DRUGS (10)
  1. TAMIFLU [Suspect]
     Indication: INFLUENZA
     Dosage: FORM DRY SYRUP
     Route: 048
     Dates: start: 20080310, end: 20080311
  2. CELESTAMINE TAB [Concomitant]
     Route: 048
  3. CELESTAMINE TAB [Concomitant]
     Route: 048
  4. MUCOSAL [Concomitant]
     Dosage: FORM ORAL FORMULATION NOS
     Route: 048
  5. VICCILLIN [Concomitant]
     Dosage: FORM ORAL FORMULATION NOS
     Route: 048
     Dates: start: 20080308, end: 20080309
  6. CEFZON [Concomitant]
     Dosage: FORM FINE GRANULES
     Route: 048
     Dates: start: 20080310, end: 20080317
  7. UNIPRON [Concomitant]
     Dosage: FORM RECTAL SUPPOSITORY
     Route: 054
  8. MEICELIN [Concomitant]
     Route: 041
     Dates: start: 20080310, end: 20080310
  9. GLUCOSE [Concomitant]
     Route: 041
     Dates: start: 20080310, end: 20080310
  10. SOLITA-T1 [Concomitant]
     Route: 041
     Dates: start: 20080310, end: 20080310

REACTIONS (1)
  - ABNORMAL BEHAVIOUR [None]
